FAERS Safety Report 6163052-7 (Version None)
Quarter: 2009Q2

REPORT INFORMATION
  Report Type: 
  Country: None (occurrence: None)
  Receive Date: 20090422
  Receipt Date: 20090407
  Transmission Date: 20091009
  Serious: Yes (Other)
  Sender: FDA-Public Use
  Company Number: CZ-ELI_LILLY_AND_COMPANY-CZ200903003578

PATIENT
  Age: 61 Year
  Sex: Male

DRUGS (10)
  1. BYETTA [Suspect]
     Indication: TYPE 2 DIABETES MELLITUS
     Dosage: 5 UG, 2/D
     Route: 058
     Dates: start: 20080601
  2. BYETTA [Suspect]
     Dosage: 10 UG, 2/D
     Route: 058
  3. BYETTA [Suspect]
     Dosage: 5 UG, 2/D
     Route: 065
     Dates: end: 20090305
  4. PRESTARIUM [Concomitant]
     Indication: HYPERTENSION
     Dosage: UNK UNK, DAILY (1/D)
     Route: 048
  5. SORTIS [Concomitant]
     Indication: HYPERLIPIDAEMIA
     Dosage: UNK UNK, DAILY (1/D)
     Route: 048
  6. CONCOR                             /00802601/ [Concomitant]
     Indication: HYPERTENSION
     Dosage: UNK UNK, DAILY (1/D)
     Route: 048
  7. GLUCOPHAGE [Concomitant]
     Indication: TYPE 2 DIABETES MELLITUS
     Dosage: 1000 MG, 3/D
     Route: 048
     Dates: end: 20090305
  8. MILURIT [Concomitant]
     Dosage: 300 MG, DAILY (1/D)
     Route: 048
  9. JANUVIA [Concomitant]
     Dosage: UNK, UNK
     Route: 048
     Dates: end: 20090305
  10. INDAPAMIDE [Concomitant]
     Indication: HYPERTENSION
     Dosage: UNK, UNKNOWN
     Route: 065

REACTIONS (3)
  - BLOOD GLUCOSE INCREASED [None]
  - HEPATIC STEATOSIS [None]
  - PANCREATITIS [None]
